FAERS Safety Report 7035721-8 (Version None)
Quarter: 2010Q4

REPORT INFORMATION
  Report Type: 
  Country: None (occurrence: None)
  Receive Date: 20101008
  Receipt Date: 20101005
  Transmission Date: 20110411
  Serious: Yes (Hospitalization)
  Sender: FDA-Public Use
  Company Number: FR-BRISTOL-MYERS SQUIBB COMPANY-15322621

PATIENT
  Age: 63 Year
  Sex: Male

DRUGS (3)
  1. VIDEX [Suspect]
     Indication: HIV INFECTION
     Dosage: 2002:7DAYS TRT/WK;2003:6DAYS TRT/WK;2004:5DAYS TRT/WK;2008:3DAYS OF TRT/WK;MAR10:3D/WK
     Dates: start: 20020101
  2. TRUVADA [Suspect]
     Indication: HIV INFECTION
     Dosage: 2002:7DAYS TRT/WK;2003:6DAYS TRT/WK;2004:5DAYS TRT/WK;2008:3DAYS OF TRT/WK;MAR10 3D/WK
  3. VIRAMUNE [Suspect]
     Indication: HIV INFECTION
     Dosage: 2002:7DAYS TRT/WK;2003:6DAYS TRT/WK;2004:5DAYS TRT/WK;2008:3DAYS OF TRT/WK;MAR10:HALF DOSE:VIRAMUNE

REACTIONS (3)
  - ATRIAL FIBRILLATION [None]
  - CEREBROVASCULAR ACCIDENT [None]
  - EMBOLISM ARTERIAL [None]
